FAERS Safety Report 6876304-X (Version None)
Quarter: 2010Q3

REPORT INFORMATION
  Report Type: 
  Country: None (occurrence: None)
  Receive Date: 20100727
  Receipt Date: 20100721
  Transmission Date: 20110219
  Serious: Yes (Hospitalization)
  Sender: FDA-Public Use
  Company Number: Z0004769A

PATIENT
  Age: 43 Year
  Sex: Female
  Weight: 85.9 kg

DRUGS (1)
  1. FLUTICASONE FUROATE [Suspect]
     Indication: ASTHMA
     Dosage: 100MCG PER DAY
     Route: 055
     Dates: start: 20100323

REACTIONS (1)
  - ASTHMA [None]
